FAERS Safety Report 23863429 (Version 1)
Quarter: 2024Q2

REPORT INFORMATION
  Report Type: Spontaneous
  Country: US (occurrence: None)
  Receive Date: 20240515
  Receipt Date: 20240515
  Transmission Date: 20240715
  Serious: Yes (Other)
  Sender: FDA-Public Use
  Company Number: None

PATIENT
  Age: 79 Year
  Sex: Female
  Weight: 48.08 kg

DRUGS (5)
  1. TYMLOS [Suspect]
     Active Substance: ABALOPARATIDE
  2. PROLIA [Suspect]
     Active Substance: DENOSUMAB
  3. CLONAZEPAM [Concomitant]
     Active Substance: CLONAZEPAM
  4. Q Var [Concomitant]
  5. Vitamin D3 - OTC [Concomitant]

REACTIONS (8)
  - Heart rate increased [None]
  - Nasopharyngitis [None]
  - Nausea [None]
  - Vertigo [None]
  - Emotional distress [None]
  - Therapy cessation [None]
  - Pruritus [None]
  - Rash [None]

NARRATIVE: CASE EVENT DATE: 20240323
